FAERS Safety Report 9209666 (Version 1)
Quarter: 2013Q1

REPORT INFORMATION
  Report Type: Spontaneous
  Country: US (occurrence: None)
  Receive Date: 20120820
  Receipt Date: 20120820
  Transmission Date: 20140127
  Serious: No
  Sender: FDA-Public Use
  Company Number: 1000030434

PATIENT
  Sex: Male

DRUGS (1)
  1. VIIBRYD [Suspect]
     Indication: OBSESSIVE-COMPULSIVE DISORDER
     Dosage: 10 MG (10 MG, 1 IN 1 D), ORAL
     Route: 048
     Dates: start: 201204, end: 2012

REACTIONS (3)
  - Libido decreased [None]
  - Anorgasmia [None]
  - Off label use [None]
